FAERS Safety Report 8187748-0 (Version None)
Quarter: 2012Q1

REPORT INFORMATION
  Report Type: 
  Country: None (occurrence: None)
  Receive Date: 20120306
  Receipt Date: 20120229
  Transmission Date: 20120608
  Serious: Yes (Other)
  Sender: FDA-Public Use
  Company Number: US-PFIZER INC-2012055228

PATIENT
  Sex: Female
  Weight: 77.098 kg

DRUGS (6)
  1. LYRICA [Suspect]
     Dosage: UNK
     Dates: end: 20120201
  2. LYRICA [Suspect]
     Dosage: 300 MG, DAILY
  3. TRAMADOL [Concomitant]
     Dosage: UNK
  4. LYRICA [Suspect]
     Indication: NEUROPATHY PERIPHERAL
     Dosage: 50 MG, 2X/DAY
  5. ISOSORBIDE [Concomitant]
     Indication: CARDIAC DISORDER
     Dosage: UNK
  6. DIOVAN [Concomitant]
     Indication: HYPERTENSION
     Dosage: UNK

REACTIONS (3)
  - MYOCARDIAL INFARCTION [None]
  - MUSCLE TWITCHING [None]
  - JOINT INSTABILITY [None]
